FAERS Safety Report 7358406-7 (Version None)
Quarter: 2011Q1

REPORT INFORMATION
  Report Type: 
  Country: None (occurrence: None)
  Receive Date: 20110314
  Receipt Date: 20110314
  Transmission Date: 20110831
  Serious: Yes (Other)
  Sender: FDA-Public Use
  Company Number: None

PATIENT
  Age: 57 Year
  Sex: Female
  Weight: 74.3899 kg

DRUGS (1)
  1. DOXYCYCLINE HYCLATE [Suspect]
     Indication: PNEUMONIA
     Dosage: 100MG TWICE PER DAY PO
     Route: 048
     Dates: start: 20110228, end: 20110305

REACTIONS (9)
  - VOMITING [None]
  - DECREASED APPETITE [None]
  - HYPERHIDROSIS [None]
  - DIARRHOEA [None]
  - CHILLS [None]
  - HEADACHE [None]
  - FATIGUE [None]
  - PHOTOPHOBIA [None]
  - GASTRITIS [None]
